FAERS Safety Report 24096343 (Version 1)
Quarter: 2024Q3

REPORT INFORMATION
  Report Type: Spontaneous
  Country: IT (occurrence: IT)
  Receive Date: 20240716
  Receipt Date: 20240716
  Transmission Date: 20241016
  Serious: Yes (Hospitalization)
  Sender: RANBAXY
  Company Number: IT-MINISAL02-981707

PATIENT
  Age: 44 Year
  Sex: Female

DRUGS (3)
  1. ALPRAZOLAM [Suspect]
     Active Substance: ALPRAZOLAM
     Indication: Product used for unknown indication
     Dosage: 10 MILLIGRAM, UNK
     Route: 048
  2. ACETAMINOPHEN\CAFFEINE\ORPHENADRINE CITRATE [Suspect]
     Active Substance: ACETAMINOPHEN\CAFFEINE\ORPHENADRINE CITRATE
     Indication: Product used for unknown indication
     Dosage: 6 DOSAGE FORM, UNK
     Route: 048
  3. ZOLPIDEM [Suspect]
     Active Substance: ZOLPIDEM TARTRATE
     Indication: Product used for unknown indication
     Dosage: 0.7 GRAM
     Route: 048

REACTIONS (3)
  - Toxicity to various agents [Recovering/Resolving]
  - Hypertension [Recovering/Resolving]
  - Somnolence [Recovering/Resolving]

NARRATIVE: CASE EVENT DATE: 20230511
